FAERS Safety Report 4411707-4 (Version None)
Quarter: 2004Q3

REPORT INFORMATION
  Report Type: 
  Country: None (occurrence: None)
  Receive Date: 20040730
  Receipt Date: 20040726
  Transmission Date: 20050211
  Serious: Yes (Hospitalization)
  Sender: FDA-Public Use
  Company Number: GB-BRISTOL-MYERS SQUIBB COMPANY-12652863

PATIENT
  Age: 68 Year
  Sex: Female

DRUGS (15)
  1. METFORMIN HCL [Suspect]
     Indication: DIABETES MELLITUS
     Route: 048
     Dates: start: 20040621, end: 20040706
  2. LANSOPRAZOLE [Concomitant]
  3. SENNA [Concomitant]
  4. FRUSEMIDE [Concomitant]
  5. SPIRONOLACTONE [Concomitant]
  6. AMITRIPTYLINE HCL [Concomitant]
  7. SIMVASTATIN [Concomitant]
  8. LISINOPRIL [Concomitant]
  9. GLIMEPIRIDE [Concomitant]
  10. ASPIRIN [Concomitant]
  11. DOCUSATE [Concomitant]
  12. THYROXINE [Concomitant]
  13. TEMAZEPAM [Concomitant]
  14. DIHYDROCODEINE [Concomitant]
  15. TRIMETHOPRIM [Concomitant]

REACTIONS (3)
  - DEHYDRATION [None]
  - MALAISE [None]
  - VOMITING [None]
